FAERS Safety Report 5594567-8 (Version None)
Quarter: 2008Q1

REPORT INFORMATION
  Report Type: 
  Country: None (occurrence: None)
  Receive Date: 20080117
  Receipt Date: 20080102
  Transmission Date: 20080703
  Serious: Yes (Hospitalization)
  Sender: FDA-Public Use
  Company Number: US-BAYER-200810164BCC

PATIENT
  Age: 70 Year
  Sex: Female
  Weight: 62 kg

DRUGS (15)
  1. ASPIRIN [Suspect]
     Indication: PULMONARY HYPERTENSION
     Dates: start: 20070822
  2. SIMVASTATIN [Suspect]
     Indication: PULMONARY HYPERTENSION
     Dates: start: 20070822
  3. FLOLAN [Concomitant]
  4. METFORMIN HCL [Concomitant]
  5. POTASSIUM CHLORIDE [Concomitant]
  6. SYNTHROID [Concomitant]
  7. SUCRALFATE [Concomitant]
  8. NEXIUM [Concomitant]
  9. FOLIC ACID [Concomitant]
  10. MULTI-VITAMIN [Concomitant]
  11. VITAMIN B6 [Concomitant]
  12. DOCUSATE [Concomitant]
  13. COUMADIN [Concomitant]
  14. DEMADEX [Concomitant]
  15. ALDACTONE [Concomitant]

REACTIONS (5)
  - ABDOMINAL DISTENSION [None]
  - CARDIAC FAILURE CONGESTIVE [None]
  - DYSPNOEA [None]
  - OEDEMA PERIPHERAL [None]
  - WEIGHT INCREASED [None]
